FAERS Safety Report 21056563 (Version 1)
Quarter: 2022Q3

REPORT INFORMATION
  Report Type: Spontaneous
  Country: US (occurrence: US)
  Receive Date: 20220708
  Receipt Date: 20220708
  Transmission Date: 20221027
  Serious: No
  Sender: FDA-Public Use
  Company Number: US-ALLERGAN-2210963US

PATIENT
  Sex: Female

DRUGS (1)
  1. QULIPTA [Suspect]
     Active Substance: ATOGEPANT
     Indication: Product used for unknown indication
     Dates: start: 20220217, end: 20220221

REACTIONS (4)
  - Palpitations [Unknown]
  - Abdominal discomfort [Unknown]
  - Muscle twitching [Unknown]
  - Anxiety [Unknown]
